FAERS Safety Report 4880801-6 (Version None)
Quarter: 2006Q1

REPORT INFORMATION
  Report Type: 
  Country: None (occurrence: None)
  Receive Date: 20060111
  Receipt Date: 20051010
  Transmission Date: 20060701
  Serious: Yes (Other)
  Sender: FDA-Public Use
  Company Number: 2005S1000215

PATIENT
  Age: 74 Year
  Weight: 107 kg

DRUGS (10)
  1. CUBICIN [Suspect]
     Indication: STAPHYLOCOCCAL BACTERAEMIA
     Dosage: 6 MG/KG;Q48H;IV
     Route: 042
     Dates: start: 20051003, end: 20051009
  2. VANCOMYCIN [Concomitant]
  3. VASOPRESSIN INJECTION [Concomitant]
  4. NOREPINEPHRINE [Concomitant]
  5. PROPOFOL [Concomitant]
  6. MORPHINE [Concomitant]
  7. METHYLPREDNISOLONE [Concomitant]
  8. INSULIN [Concomitant]
  9. RISPERIDONE [Concomitant]
  10. FUROSEMIDE [Concomitant]

REACTIONS (1)
  - RENAL FAILURE ACUTE [None]
